FAERS Safety Report 9697470 (Version 2)
Quarter: 2013Q4

REPORT INFORMATION
  Report Type: Spontaneous
  Country: BR (occurrence: BR)
  Receive Date: 20131120
  Receipt Date: 20131120
  Transmission Date: 20140711
  Serious: Yes (Other)
  Sender: FDA-Public Use
  Company Number: PHHY2010BR34442

PATIENT
  Age: 72 Year
  Sex: Female
  Weight: 64 kg

DRUGS (5)
  1. STALEVO [Suspect]
     Indication: PARKINSON^S DISEASE
     Dosage: 1 DF (100/25/200 MG), TID
     Route: 048
  2. STALEVO [Suspect]
     Dosage: 3 DF A DAY
     Route: 048
     Dates: start: 2005
  3. STALEVO [Suspect]
     Dosage: UNK UKN, BID
     Route: 048
  4. LANSOPRAZOLE [Concomitant]
     Indication: ABDOMINAL DISCOMFORT
     Dosage: 30 MG, 1 TABLET DURING FAST
     Route: 048
  5. PURAN T4 [Concomitant]
     Indication: HYPOTHYROIDISM
     Dosage: 50 UG FROM MONDAY TO SATURDAY AND 75 UF ON SUNDAYS
     Route: 048

REACTIONS (17)
  - Petit mal epilepsy [Recovered/Resolved]
  - Blood count abnormal [Unknown]
  - Occult blood positive [Unknown]
  - Abnormal faeces [Unknown]
  - Limb discomfort [Not Recovered/Not Resolved]
  - Emotional disorder [Not Recovered/Not Resolved]
  - Pain [Unknown]
  - Dysstasia [Not Recovered/Not Resolved]
  - Back pain [Recovered/Resolved]
  - Muscular weakness [Not Recovered/Not Resolved]
  - Urinary tract infection [Not Recovered/Not Resolved]
  - Hallucination [Recovered/Resolved]
  - Rash macular [Not Recovered/Not Resolved]
  - Asthenia [Not Recovered/Not Resolved]
  - Insomnia [Unknown]
  - Somnolence [Unknown]
  - Malaise [Recovered/Resolved]
